FAERS Safety Report 10967689 (Version 1)
Quarter: 2015Q1

REPORT INFORMATION
  Report Type: Spontaneous
  Country: US (occurrence: US)
  Receive Date: 20150330
  Receipt Date: 20150330
  Transmission Date: 20150721
  Serious: No
  Sender: FDA-Public Use
  Company Number: US-ASTRAZENECA-2014SE21090

PATIENT
  Age: 45 Year
  Sex: Female
  Weight: 87.1 kg

DRUGS (4)
  1. CALCIUM WITH VITAMIN D3 [Concomitant]
     Active Substance: CALCIUM CARBONATE\CHOLECALCIFEROL
     Indication: VITAMIN SUPPLEMENTATION
     Route: 048
     Dates: start: 2009
  2. NEXIUM [Suspect]
     Active Substance: ESOMEPRAZOLE MAGNESIUM
     Indication: BARRETT^S OESOPHAGUS
     Route: 048
     Dates: start: 2001
  3. LOSARTAN [Concomitant]
     Active Substance: LOSARTAN
     Indication: HYPERTENSION
     Route: 048
     Dates: start: 2012
  4. WOMENS HEALTH [Concomitant]
     Indication: VITAMIN SUPPLEMENTATION
     Dosage: UNK QD
     Route: 048
     Dates: start: 2009

REACTIONS (7)
  - Barrett^s oesophagus [Unknown]
  - Dysplasia [Unknown]
  - Dyspepsia [Unknown]
  - Drug effect decreased [Unknown]
  - Gastrooesophageal reflux disease [Unknown]
  - Ulcer [Unknown]
  - Hernia [Unknown]

NARRATIVE: CASE EVENT DATE: 2004
